FAERS Safety Report 6268385-1 (Version None)
Quarter: 2009Q3

REPORT INFORMATION
  Report Type: 
  Country: None (occurrence: None)
  Receive Date: 20090713
  Receipt Date: 20090713
  Transmission Date: 20100115
  Serious: Yes (Hospitalization)
  Sender: FDA-Public Use
  Company Number: None

PATIENT
  Age: 35 Year
  Sex: Male
  Weight: 95.2554 kg

DRUGS (1)
  1. PRILOSEC [Suspect]
     Indication: GASTROOESOPHAGEAL REFLUX DISEASE
     Dosage: 20MG 1 PER DAY PO
     Route: 048
     Dates: start: 20070901, end: 20081216

REACTIONS (5)
  - ANXIETY [None]
  - DIZZINESS [None]
  - OEDEMA PERIPHERAL [None]
  - PALPITATIONS [None]
  - VISION BLURRED [None]
